FAERS Safety Report 4396221-7 (Version None)
Quarter: 2004Q2

REPORT INFORMATION
  Report Type: 
  Country: None (occurrence: None)
  Receive Date: 20040621
  Receipt Date: 20031121
  Transmission Date: 20050107
  Serious: Yes (Death)
  Sender: FDA-Public Use
  Company Number: USA-2003-0010988

PATIENT
  Age: 46 Year
  Sex: Male
  Weight: 76.2 kg

DRUGS (4)
  1. OXYCONTIN [Suspect]
     Indication: PAIN
  2. COCAINE (COCAINE) [Suspect]
  3. BENZODIAZEPINE (BENZODIAZEPINE) [Suspect]
  4. NICOTINE [Suspect]

REACTIONS (2)
  - ACCIDENTAL OVERDOSE [None]
  - MULTIPLE DRUG OVERDOSE [None]
